FAERS Safety Report 10047578 (Version 1)
Quarter: 2014Q1

REPORT INFORMATION
  Report Type: Spontaneous
  Country: US (occurrence: None)
  Receive Date: 20140327
  Receipt Date: 20140327
  Transmission Date: 20141002
  Serious: Yes (Hospitalization)
  Sender: FDA-Public Use
  Company Number: 2014AP002254

PATIENT
  Age: 19 Year
  Sex: Male

DRUGS (9)
  1. MYCOPHENOLATE MOFETIL [Suspect]
     Indication: IMMUNOSUPPRESSANT DRUG THERAPY
     Dosage: 1000 MG; BID ; UNK?
  2. DACLIZUMAB [Suspect]
     Indication: IMMUNOSUPPRESSANT DRUG THERAPY
     Dosage: 1 MG/KG ; UNK; UNK
  3. CICLOSPORIN [Suspect]
     Indication: IMMUNOSUPPRESSANT DRUG THERAPY
     Route: 042
  4. PREDNISONE [Suspect]
     Dosage: 25G MG; BID; UNK????????
  5. TACROLIMUS [Suspect]
     Indication: IMMUNOSUPPRESSANT DRUG THERAPY
     Dosage: 2 MG ;  BID; UNK
  6. LISINOPRIL [Concomitant]
  7. AMIODARONE [Concomitant]
  8. ASPIRIN [Concomitant]
  9. SILDENAFIL [Concomitant]

REACTIONS (5)
  - Muscular weakness [None]
  - Grand mal convulsion [None]
  - Respiratory failure [None]
  - Renal impairment [None]
  - Haemodialysis [None]
